FAERS Safety Report 7055695-3 (Version None)
Quarter: 2010Q4

REPORT INFORMATION
  Report Type: 
  Country: None (occurrence: None)
  Receive Date: 20101021
  Receipt Date: 20101012
  Transmission Date: 20110411
  Serious: Yes (Hospitalization, Other)
  Sender: FDA-Public Use
  Company Number: US-JNJFOC-20100806498

PATIENT
  Sex: Female

DRUGS (2)
  1. LEVAQUIN [Suspect]
     Indication: NASOPHARYNGITIS
     Route: 048
  2. LEVAQUIN [Suspect]
     Route: 048

REACTIONS (4)
  - DEPRESSION [None]
  - FALL [None]
  - STRESS [None]
  - TENDON RUPTURE [None]
